FAERS Safety Report 9218117 (Version 1)
Quarter: 2013Q2

REPORT INFORMATION
  Report Type: Spontaneous
  Country: KR (occurrence: KR)
  Receive Date: 20130408
  Receipt Date: 20130408
  Transmission Date: 20140414
  Serious: Yes (Death)
  Sender: FDA-Public Use
  Company Number: KR-BAXTER-2013BAX013166

PATIENT
  Sex: 0

DRUGS (3)
  1. ENDOXAN INJ 500MG [Suspect]
     Indication: APLASTIC ANAEMIA
     Route: 065
  2. FLUDARABINE [Suspect]
     Indication: APLASTIC ANAEMIA
     Route: 065
  3. ATG [Suspect]
     Indication: APLASTIC ANAEMIA
     Route: 065

REACTIONS (1)
  - Acute myeloid leukaemia [Fatal]
